FAERS Safety Report 5716647-6 (Version None)
Quarter: 2008Q2

REPORT INFORMATION
  Report Type: 
  Country: None (occurrence: None)
  Receive Date: 20080424
  Receipt Date: 20070423
  Transmission Date: 20081010
  Serious: No
  Sender: FDA-Public Use
  Company Number: US-BAYER-200710094BWH

PATIENT
  Age: 59 Year
  Sex: Male
  Weight: 95 kg

DRUGS (6)
  1. LEVITRA [Suspect]
     Indication: ERECTILE DYSFUNCTION
     Dosage: TOTAL DAILY DOSE: 20 MG  UNIT DOSE: 20 MG
     Route: 048
     Dates: start: 20050101
  2. CLONAZEPAM [Concomitant]
  3. PRILOSEC [Concomitant]
  4. TARKA [Concomitant]
  5. ZOCOR [Concomitant]
  6. NABUMETONE [Concomitant]

REACTIONS (1)
  - EJACULATION DISORDER [None]
